FAERS Safety Report 4620122-X (Version None)
Quarter: 2005Q1

REPORT INFORMATION
  Report Type: 
  Country: None (occurrence: None)
  Receive Date: 20050328
  Receipt Date: 20031223
  Transmission Date: 20050727
  Serious: Yes (Other)
  Sender: FDA-Public Use
  Company Number: US-AMGEN-US062318

PATIENT
  Sex: Male
  Weight: 40 kg

DRUGS (12)
  1. EPOGEN [Suspect]
     Indication: RENAL FAILURE CHRONIC
     Route: 042
     Dates: start: 20030908, end: 20031222
  2. CALCIUM CARBONATE [Concomitant]
     Route: 048
  3. SEVELAMER HCL [Concomitant]
     Route: 048
     Dates: start: 20031201
  4. LEVOCARNITINE [Concomitant]
     Route: 042
     Dates: start: 20031201
  5. PARICALCITOL [Concomitant]
     Route: 042
  6. OXYBUTYNIN [Concomitant]
     Route: 048
     Dates: start: 20031118
  7. LABETALOL HCL [Concomitant]
     Route: 048
     Dates: start: 20031113
  8. DOCUSATE SODIUM [Concomitant]
     Route: 048
     Dates: start: 20031114
  9. AMLODIPINE [Concomitant]
     Route: 048
     Dates: start: 20031114
  10. FOLIC ACID [Concomitant]
     Route: 048
  11. IMIPRAMINE [Concomitant]
     Route: 048
  12. ZINC GLUCONATE [Concomitant]
     Route: 048
     Dates: start: 20030130

REACTIONS (5)
  - ANAEMIA [None]
  - ANAEMIA MACROCYTIC [None]
  - ANTI-ERYTHROPOIETIN ANTIBODY POSITIVE [None]
  - COPPER DEFICIENCY [None]
  - URINARY TRACT INFECTION [None]
